FAERS Safety Report 10242406 (Version 2)
Quarter: 2014Q3

REPORT INFORMATION
  Report Type: Spontaneous
  Country: JP (occurrence: JP)
  Receive Date: 20140617
  Receipt Date: 20140827
  Transmission Date: 20150326
  Serious: Yes (Other)
  Sender: FDA-Public Use
  Company Number: JP-PFIZER INC-2014163481

PATIENT
  Age: 74 Year
  Sex: Female

DRUGS (15)
  1. TERNELIN [Concomitant]
     Active Substance: TIZANIDINE
     Dosage: UNK
  2. FUROSEMIDE. [Concomitant]
     Active Substance: FUROSEMIDE
     Dosage: UNK
  3. METHYCOOL [Concomitant]
     Active Substance: METHYLCOBALAMIN
     Dosage: UNK
  4. TRAMCET [Concomitant]
     Active Substance: ACETAMINOPHEN\TRAMADOL
     Dosage: UNK
  5. TANATRIL [Concomitant]
     Active Substance: IMIDAPRIL
     Dosage: UNK
  6. ARTIST [Concomitant]
     Active Substance: CARVEDILOL
     Dosage: UNK
  7. CELECOX [Suspect]
     Active Substance: CELECOXIB
     Dosage: 200 MG, 1X/DAY
     Route: 048
     Dates: start: 20140513
  8. NOVAMIN [Concomitant]
     Active Substance: PROCHLORPERAZINE MALEATE
     Dosage: UNK
  9. LYRICA [Concomitant]
     Active Substance: PREGABALIN
     Dosage: UNK
  10. LANIRAPID [Concomitant]
     Active Substance: METILDIGOXIN
     Dosage: UNK
  11. GLIMEPIRIDE. [Concomitant]
     Active Substance: GLIMEPIRIDE
     Dosage: UNK
  12. DIOVAN [Concomitant]
     Active Substance: VALSARTAN
     Dosage: UNK
  13. WARFARIN [Concomitant]
     Active Substance: WARFARIN
     Dosage: UNK
  14. SEIBULE [Concomitant]
     Active Substance: MIGLITOL
     Dosage: UNK
  15. SENNOSIDE [Concomitant]
     Active Substance: SENNOSIDES
     Dosage: UNK

REACTIONS (1)
  - Pleural effusion [Recovered/Resolved]

NARRATIVE: CASE EVENT DATE: 20140606
